FAERS Safety Report 5381966-2 (Version None)
Quarter: 2007Q3

REPORT INFORMATION
  Report Type: 
  Country: None (occurrence: None)
  Receive Date: 20070709
  Receipt Date: 20070703
  Transmission Date: 20080115
  Serious: Yes (Other)
  Sender: FDA-Public Use
  Company Number: A0661428A

PATIENT
  Age: 48 Year
  Sex: Female

DRUGS (7)
  1. ARIXTRA [Suspect]
     Dosage: 2.5MG PER DAY
     Route: 058
     Dates: start: 20070529
  2. PROTONIX [Concomitant]
  3. PAXIL [Concomitant]
  4. CARDIZEM [Concomitant]
  5. ISORDIL [Concomitant]
  6. XANAX [Concomitant]
  7. FLEXERIL [Concomitant]

REACTIONS (2)
  - BREAST SWELLING [None]
  - PLEURAL EFFUSION [None]
